FAERS Safety Report 8793970 (Version 61)
Quarter: 2021Q2

REPORT INFORMATION
  Report Type: Report from Study
  Country: CA (occurrence: CA)
  Receive Date: 20120917
  Receipt Date: 20210621
  Transmission Date: 20210717
  Serious: Yes (Hospitalization, Other)
  Sender: FDA-Public Use
  Company Number: PHHY2012CA050875

PATIENT
  Age: 53 Year
  Sex: Female

DRUGS (12)
  1. SANDOSTATIN LAR DEPOT [Suspect]
     Active Substance: OCTREOTIDE ACETATE
     Indication: METASTATIC BRONCHIAL CARCINOMA
     Dosage: 30 MG, QMO
     Route: 030
     Dates: start: 20120305, end: 20170621
  2. CYCLOBENZAPRINE. [Concomitant]
     Active Substance: CYCLOBENZAPRINE
     Indication: INFLAMMATORY PAIN
     Dosage: 10 MG, UNK
     Route: 065
  3. SANDOSTATIN LAR DEPOT [Suspect]
     Active Substance: OCTREOTIDE ACETATE
  4. MORPHINE [Suspect]
     Active Substance: MORPHINE
     Indication: PAIN
     Dosage: 10 MG, PRN
     Route: 048
     Dates: start: 20161124
  5. MIRTAZAPINE. [Concomitant]
     Active Substance: MIRTAZAPINE
     Indication: DEPRESSION
     Route: 065
  6. MIRTAZAPINE. [Concomitant]
     Active Substance: MIRTAZAPINE
     Indication: INSOMNIA
  7. HYDROMORPHONE [Concomitant]
     Active Substance: HYDROMORPHONE
     Dosage: 5 MG, Q2H
     Route: 065
  8. HYDROMORPHONE [Concomitant]
     Active Substance: HYDROMORPHONE
     Indication: PAIN
     Dosage: 5 MG, Q4H
     Route: 065
  9. MIRTAZAPINE. [Concomitant]
     Active Substance: MIRTAZAPINE
     Indication: DECREASED APPETITE
  10. AFINITOR [Suspect]
     Active Substance: EVEROLIMUS
     Indication: NEUROENDOCRINE TUMOUR OF THE LUNG
     Dosage: 10 MG, QD
     Route: 048
     Dates: start: 2017, end: 201710
  11. METFORMIN [Suspect]
     Active Substance: METFORMIN HYDROCHLORIDE
     Indication: PRODUCT USED FOR UNKNOWN INDICATION
     Dosage: UNK
     Route: 065
     Dates: end: 20190128
  12. SANDOSTATIN LAR DEPOT [Suspect]
     Active Substance: OCTREOTIDE ACETATE
     Indication: NEUROENDOCRINE TUMOUR OF THE LUNG
     Dosage: 30 MG, QMO
     Route: 030
     Dates: start: 20171006

REACTIONS (75)
  - Blood pressure increased [Unknown]
  - Coccydynia [Unknown]
  - Groin pain [Unknown]
  - Diarrhoea [Recovered/Resolved]
  - Epistaxis [Unknown]
  - Ovarian cyst [Unknown]
  - Blood pressure systolic decreased [Unknown]
  - Gastritis [Unknown]
  - Eructation [Recovered/Resolved]
  - Nasopharyngitis [Unknown]
  - Abdominal pain [Unknown]
  - Bone pain [Recovered/Resolved]
  - Back pain [Recovering/Resolving]
  - Nausea [Unknown]
  - Urinary incontinence [Recovering/Resolving]
  - Chest pain [Recovering/Resolving]
  - Gastrointestinal motility disorder [Recovered/Resolved]
  - Headache [Recovered/Resolved]
  - Pneumonia [Recovered/Resolved]
  - Metastases to bone [Not Recovered/Not Resolved]
  - Cholelithiasis [Unknown]
  - Joint injury [Unknown]
  - Gallbladder disorder [Unknown]
  - Inflammation [Recovering/Resolving]
  - Swelling [Unknown]
  - Cold sweat [Unknown]
  - Illness [Unknown]
  - Fatigue [Unknown]
  - Vomiting [Recovered/Resolved]
  - Hyperaesthesia [Unknown]
  - Mass [Unknown]
  - Nodule [Unknown]
  - Gingival bleeding [Unknown]
  - Peripheral coldness [Unknown]
  - Osteoarthritis [Unknown]
  - Blood glucose decreased [Unknown]
  - Vomiting [Unknown]
  - Needle issue [Unknown]
  - Cataract [Unknown]
  - Hypoaesthesia [Unknown]
  - Arthralgia [Unknown]
  - Gastroenteritis viral [Recovered/Resolved]
  - Bowel movement irregularity [Recovering/Resolving]
  - Cough [Recovering/Resolving]
  - Hypotension [Unknown]
  - Contusion [Unknown]
  - Gastrointestinal haemorrhage [Unknown]
  - Pain [Unknown]
  - Ovarian cyst ruptured [Unknown]
  - Brain cancer metastatic [Unknown]
  - Choking sensation [Recovering/Resolving]
  - Abdominal discomfort [Unknown]
  - Asthenia [Unknown]
  - Metastases to stomach [Unknown]
  - Malignant neoplasm progression [Unknown]
  - Pain [Recovered/Resolved]
  - Choroid melanoma [Unknown]
  - Musculoskeletal pain [Unknown]
  - Aptyalism [Unknown]
  - Nausea [Recovered/Resolved]
  - Drug ineffective [Unknown]
  - Diarrhoea [Unknown]
  - Paraesthesia [Unknown]
  - Metastases to ovary [Unknown]
  - Blood pressure diastolic increased [Unknown]
  - Blood pressure systolic increased [Unknown]
  - Nausea [Recovered/Resolved]
  - Hypertonic bladder [Unknown]
  - Odynophagia [Unknown]
  - Nervousness [Unknown]
  - Weight decreased [Unknown]
  - Abdominal pain lower [Unknown]
  - Headache [Unknown]
  - Dizziness [Unknown]
  - Product use in unapproved indication [Unknown]

NARRATIVE: CASE EVENT DATE: 20120305
